FAERS Safety Report 18176154 (Version 3)
Quarter: 2021Q3

REPORT INFORMATION
  Report Type: Spontaneous
  Country: DE (occurrence: DE)
  Receive Date: 20200820
  Receipt Date: 20210713
  Transmission Date: 20211014
  Serious: Yes (Death, Hospitalization, Other)
  Sender: FDA-Public Use
  Company Number: NVSC2020DE228853

PATIENT
  Age: 56 Year
  Sex: Male

DRUGS (4)
  1. HEPARIN [Interacting]
     Active Substance: HEPARIN SODIUM
     Indication: ANTICOAGULANT THERAPY
  2. ACETYLSALICYLIC ACID [Suspect]
     Active Substance: ASPIRIN
     Indication: COVID-19
     Dosage: UNK, (LOW DOSE)
     Route: 065
  3. ACETYLSALICYLIC ACID [Interacting]
     Active Substance: ASPIRIN
     Indication: ANTICOAGULANT THERAPY
  4. HEPARIN [Interacting]
     Active Substance: HEPARIN SODIUM
     Indication: COVID-19
     Dosage: UNK
     Route: 065

REACTIONS (9)
  - Intracranial pressure increased [Fatal]
  - Brain herniation [Fatal]
  - Subdural haemorrhage [Fatal]
  - Cerebral haemorrhage [Fatal]
  - Brain injury [Fatal]
  - Product use in unapproved indication [Unknown]
  - Hydrocephalus [Fatal]
  - Drug interaction [Fatal]
  - Cerebral mass effect [Fatal]
